FAERS Safety Report 18454262 (Version 2)
Quarter: 2020Q4

REPORT INFORMATION
  Report Type: Spontaneous
  Country: US (occurrence: US)
  Receive Date: 20201102
  Receipt Date: 20201125
  Transmission Date: 20210114
  Serious: Yes (Death, Other)
  Sender: FDA-Public Use
  Company Number: US-GILEAD-2020-0502189

PATIENT
  Age: 78 Year
  Sex: Female
  Weight: 51.79 kg

DRUGS (26)
  1. ISOSORBIDE MONONITRATE. [Concomitant]
     Active Substance: ISOSORBIDE MONONITRATE
     Indication: HYPERTENSION
     Dosage: 60 MG
     Route: 048
     Dates: start: 20201023, end: 20201024
  2. IVERMECTIN. [Concomitant]
     Active Substance: IVERMECTIN
     Indication: COVID-19
     Dosage: 12 MG
     Route: 048
     Dates: start: 20201023, end: 20201023
  3. PANTOPRAZOLE [Concomitant]
     Active Substance: PANTOPRAZOLE
     Indication: GASTRITIS
     Dosage: 40 MG
     Route: 042
     Dates: start: 20201022, end: 20201024
  4. REMDESIVIR. [Suspect]
     Active Substance: REMDESIVIR
     Dosage: 100 MG, QD
     Route: 040
     Dates: start: 20201023, end: 20201024
  5. VANCOMYCIN [Concomitant]
     Active Substance: VANCOMYCIN
     Indication: PNEUMONIA
     Dosage: 1 G
     Route: 042
     Dates: start: 20201022, end: 20201022
  6. ATORVASTATIN [Concomitant]
     Active Substance: ATORVASTATIN
     Indication: CORONARY ARTERY DISEASE
     Dosage: 80 MG
     Route: 048
     Dates: start: 20201022, end: 20201024
  7. HEPARIN [Concomitant]
     Active Substance: HEPARIN SODIUM
     Indication: HYPERCOAGULATION
     Dosage: UNK
     Dates: start: 20201023, end: 20201023
  8. EPINEPHRINE. [Concomitant]
     Active Substance: EPINEPHRINE
  9. CEFEPIME [Concomitant]
     Active Substance: CEFEPIME HYDROCHLORIDE
     Indication: PNEUMONIA
     Dosage: 2 G
     Route: 042
     Dates: start: 20201022, end: 20201022
  10. ASCORBIC ACID. [Concomitant]
     Active Substance: ASCORBIC ACID
     Indication: COVID-19
     Dosage: 3 G
     Route: 042
     Dates: start: 20201022, end: 20201024
  11. ACETYLCYSTEINE. [Concomitant]
     Active Substance: ACETYLCYSTEINE
     Indication: PNEUMONIA
     Dosage: 600 MG
     Route: 048
     Dates: start: 20201022, end: 20201024
  12. CARVEDILOL. [Concomitant]
     Active Substance: CARVEDILOL
     Indication: HYPERTENSION
     Dosage: 12.5 MG
     Route: 048
     Dates: start: 20201022, end: 20201023
  13. INSULIN [Concomitant]
     Active Substance: INSULIN NOS
     Indication: TYPE 2 DIABETES MELLITUS
     Dosage: 60 MG
     Route: 048
     Dates: start: 20201023, end: 20201024
  14. MONTELUKAST [Concomitant]
     Active Substance: MONTELUKAST SODIUM
     Dosage: 10 MG
     Route: 048
     Dates: start: 20201022, end: 20201024
  15. REMDESIVIR. [Suspect]
     Active Substance: REMDESIVIR
     Indication: COVID-19
     Dosage: 200 MG, ONCE
     Route: 040
     Dates: start: 20201022, end: 20201022
  16. ASPIRIN (E.C.) [Concomitant]
     Active Substance: ASPIRIN
     Dosage: 81 MG
     Route: 048
     Dates: start: 20201022, end: 20201024
  17. CEFTRIAXONE. [Concomitant]
     Active Substance: CEFTRIAXONE
     Indication: PNEUMONIA
     Dosage: 2 G
     Route: 042
     Dates: start: 20201023, end: 20201024
  18. FAMOTIDINE. [Concomitant]
     Active Substance: FAMOTIDINE
     Indication: GASTRITIS
     Dosage: 20 MG
     Route: 042
     Dates: start: 20201022, end: 20201024
  19. GABAPENTIN. [Concomitant]
     Active Substance: GABAPENTIN
     Indication: NEUROPATHY PERIPHERAL
     Dosage: 400 MG
     Route: 048
     Dates: start: 20201022, end: 20201024
  20. ALBUTEROL;IPRATROPIUM [Concomitant]
     Active Substance: ALBUTEROL\IPRATROPIUM
     Indication: PNEUMONIA
     Dosage: UNK
     Dates: start: 20201022, end: 20201022
  21. LEVOFLOXACIN. [Concomitant]
     Active Substance: LEVOFLOXACIN
     Indication: PNEUMONIA
     Dosage: 750 MG
     Route: 042
     Dates: start: 20201022, end: 20201022
  22. ENALAPRIL [Concomitant]
     Active Substance: ENALAPRIL
     Indication: HYPERTENSION
     Dosage: 20 MG
     Route: 048
     Dates: start: 20201022, end: 20201024
  23. AZITHROMYCIN ANHYDROUS. [Concomitant]
     Active Substance: AZITHROMYCIN ANHYDROUS
     Indication: PNEUMONIA
     Dosage: 500 MG
     Route: 042
     Dates: start: 20201022, end: 20201024
  24. METHYLPREDNISOLONE. [Concomitant]
     Active Substance: METHYLPREDNISOLONE
     Indication: COVID-19
     Dosage: 40 MG
     Route: 042
     Dates: start: 20201022, end: 20201024
  25. DOPAMINE [Concomitant]
     Active Substance: DOPAMINE HYDROCHLORIDE
  26. LEUCOVORINE [Concomitant]
     Active Substance: LEUCOVORIN

REACTIONS (6)
  - Respiratory failure [Fatal]
  - Pulmonary embolism [Fatal]
  - COVID-19 [Fatal]
  - Cardiac arrest [Fatal]
  - Respiratory arrest [Fatal]
  - Neoplasm malignant [Fatal]

NARRATIVE: CASE EVENT DATE: 20201024
